FAERS Safety Report 6825104-5 (Version None)
Quarter: 2010Q3

REPORT INFORMATION
  Report Type: 
  Country: None (occurrence: None)
  Receive Date: 20100708
  Receipt Date: 20061130
  Transmission Date: 20110219
  Serious: No
  Sender: FDA-Public Use
  Company Number: US-PFIZER INC-2006151954

PATIENT
  Age: 56 Year
  Sex: Female
  Weight: 49.9 kg

DRUGS (6)
  1. CHANTIX [Suspect]
     Indication: SMOKING CESSATION THERAPY
     Dates: start: 20061101
  2. MONTELUKAST [Concomitant]
  3. SPIRIVA [Concomitant]
  4. ALBUTEROL SULFATE [Concomitant]
  5. THEOPHYLLINE [Concomitant]
  6. OXYGEN [Concomitant]

REACTIONS (2)
  - CONSTIPATION [None]
  - NAUSEA [None]
